FAERS Safety Report 8404821-X (Version None)
Quarter: 2012Q2

REPORT INFORMATION
  Report Type: 
  Country: None (occurrence: None)
  Receive Date: 20120601
  Receipt Date: 20120523
  Transmission Date: 20120825
  Serious: Yes (Hospitalization)
  Sender: FDA-Public Use
  Company Number: US-ASTRAZENECA-2012SE33450

PATIENT
  Age: 64 Year
  Sex: Female

DRUGS (2)
  1. ZETIA [Concomitant]
  2. CRESTOR [Suspect]
     Route: 048

REACTIONS (1)
  - PNEUMONIA [None]
